FAERS Safety Report 5118047-9 (Version None)
Quarter: 2006Q3

REPORT INFORMATION
  Report Type: 
  Country: None (occurrence: None)
  Receive Date: 20060929
  Receipt Date: 20060922
  Transmission Date: 20061208
  Serious: Yes (Hospitalization, Other)
  Sender: FDA-Public Use
  Company Number: AU-ROXANE LABORATORIES, INC-2006-BP-11246RO

PATIENT
  Age: 71 Year
  Sex: Female
  Weight: 52 kg

DRUGS (5)
  1. DIGOXIN [Suspect]
     Indication: CARDIAC FAILURE
     Dosage: 62.5 MCG/DAY
  2. DIGOXIN [Concomitant]
     Route: 048
  3. GLICLAZIDE [Concomitant]
  4. IRBESARTAN [Concomitant]
  5. ISOSORBIDE DINITRATE [Concomitant]

REACTIONS (8)
  - ATRIAL FIBRILLATION [None]
  - BUNDLE BRANCH BLOCK [None]
  - BUNDLE BRANCH BLOCK LEFT [None]
  - CARDIOMEGALY [None]
  - COUGH [None]
  - DYSPNOEA [None]
  - JOINT SWELLING [None]
  - LABORATORY TEST INTERFERENCE [None]
